FAERS Safety Report 21756553 (Version 1)
Quarter: 2022Q4

REPORT INFORMATION
  Report Type: Spontaneous
  Country: FR (occurrence: None)
  Receive Date: 20221220
  Receipt Date: 20221220
  Transmission Date: 20230113
  Serious: Yes (Death)
  Sender: FDA-Public Use
  Company Number: 2022A403463

PATIENT
  Age: 71 Year
  Sex: Male

DRUGS (4)
  1. DAPAGLIFLOZIN [Suspect]
     Active Substance: DAPAGLIFLOZIN
     Indication: Type 2 diabetes mellitus
     Route: 048
     Dates: start: 20210901, end: 20220717
  2. PREGABALIN [Concomitant]
     Active Substance: PREGABALIN
     Indication: Diabetic neuropathy
     Route: 048
  3. METFORMINE CHLORHYDRATE [Concomitant]
     Indication: Type 2 diabetes mellitus
     Dosage: 2X/J
     Route: 048
     Dates: start: 20210928, end: 20220717
  4. METFORMINE CHLORHYDRATE [Concomitant]
     Indication: Type 2 diabetes mellitus
     Dosage: 2X/J
     Route: 048
     Dates: start: 20210923, end: 20210928

REACTIONS (1)
  - Cardiac arrest [Fatal]

NARRATIVE: CASE EVENT DATE: 20220717
